FAERS Safety Report 7630502-6 (Version None)
Quarter: 2011Q3

REPORT INFORMATION
  Report Type: 
  Country: None (occurrence: None)
  Receive Date: 20110722
  Receipt Date: 20110720
  Transmission Date: 20111222
  Serious: Yes (Life-Threatening, Other)
  Sender: FDA-Public Use
  Company Number: IT-PFIZER INC-2011118024

PATIENT
  Age: 71 Year
  Sex: Male

DRUGS (3)
  1. ENALAPRIL MALEATE [Concomitant]
  2. ASPIRIN [Concomitant]
  3. ATORVASTATIN CALCIUM [Suspect]
     Indication: HYPERCHOLESTEROLAEMIA
     Dosage: 10 MG, DAILY
     Route: 048
     Dates: start: 20110101, end: 20110520

REACTIONS (5)
  - DECREASED APPETITE [None]
  - ASPARTATE AMINOTRANSFERASE ABNORMAL [None]
  - ASTHENIA [None]
  - ALANINE AMINOTRANSFERASE ABNORMAL [None]
  - MYALGIA [None]
